FAERS Safety Report 8217511-3 (Version None)
Quarter: 2012Q1

REPORT INFORMATION
  Report Type: 
  Country: None (occurrence: None)
  Receive Date: 20120314
  Receipt Date: 20120302
  Transmission Date: 20120608
  Serious: Yes (Disabling, Other)
  Sender: FDA-Public Use
  Company Number: 2012AP000626

PATIENT
  Sex: Female

DRUGS (3)
  1. ALENDRONATE SODIUM [Suspect]
     Indication: OSTEOPOROSIS
  2. FOSAMAX PLUS D [Suspect]
     Indication: OSTEOPOROSIS
  3. ALENDRONATE SODIUM [Suspect]
     Indication: OSTEOPOROSIS
     Dates: start: 19950101

REACTIONS (6)
  - ANXIETY [None]
  - ANHEDONIA [None]
  - LOW TURNOVER OSTEOPATHY [None]
  - PAIN [None]
  - TERMINAL STATE [None]
  - FEMUR FRACTURE [None]
